FAERS Safety Report 10308567 (Version 1)
Quarter: 2014Q3

REPORT INFORMATION
  Report Type: Spontaneous
  Country: US (occurrence: US)
  Receive Date: 20140716
  Receipt Date: 20140716
  Transmission Date: 20150326
  Serious: Yes (Hospitalization)
  Sender: FDA-Public Use
  Company Number: US-GLAXOSMITHKLINE-A1080911A

PATIENT
  Age: 75 Year
  Sex: Male

DRUGS (5)
  1. CHEMOTHERAPY [Suspect]
     Active Substance: UNSPECIFIED INGREDIENT
     Indication: PLASMA CELL MYELOMA
     Route: 065
  2. RADIATION [Suspect]
     Active Substance: RADIATION THERAPY
     Indication: PLASMA CELL MYELOMA
     Route: 065
  3. INSULIN [Concomitant]
     Active Substance: INSULIN NOS
  4. SORIATANE [Suspect]
     Active Substance: ACITRETIN
     Indication: PSORIASIS
     Dosage: 25MG PER DAY
     Route: 048
     Dates: start: 2013, end: 2014
  5. GLIPIZIDE. [Concomitant]
     Active Substance: GLIPIZIDE

REACTIONS (8)
  - Cardioversion [Recovered/Resolved]
  - Influenza [Unknown]
  - Back pain [Not Recovered/Not Resolved]
  - Drug dose omission [Unknown]
  - Arthralgia [Recovered/Resolved]
  - Cholecystectomy [Unknown]
  - Knee arthroplasty [Recovered/Resolved]
  - Cardiac fibrillation [Recovered/Resolved]

NARRATIVE: CASE EVENT DATE: 201305
